FAERS Safety Report 18815212 (Version 1)
Quarter: 2021Q1

REPORT INFORMATION
  Report Type: Spontaneous
  Country: US (occurrence: US)
  Receive Date: 20210126
  Receipt Date: 20210126
  Transmission Date: 20210419
  Serious: Yes (Disabling)
  Sender: FDA-Public Use
  Company Number: None

PATIENT
  Age: 79 Year
  Sex: Female
  Weight: 104.33 kg

DRUGS (4)
  1. COMPRESSION STOCKING WITH WRAP [Concomitant]
  2. VITAMIN D3 [Concomitant]
     Active Substance: CHOLECALCIFEROL
  3. NO DRUG NAME [Concomitant]
  4. METHYL PREDNISOLONE [Suspect]
     Active Substance: METHYLPREDNISOLONE
     Indication: LYMPHOEDEMA

REACTIONS (1)
  - Swelling [None]

NARRATIVE: CASE EVENT DATE: 20190830
